FAERS Safety Report 7124987-1 (Version None)
Quarter: 2010Q4

REPORT INFORMATION
  Report Type: 
  Country: None (occurrence: None)
  Receive Date: 20101123
  Receipt Date: 20101123
  Transmission Date: 20110411
  Serious: Yes (Hospitalization)
  Sender: FDA-Public Use
  Company Number: None

PATIENT
  Age: 48 Year
  Sex: Female

DRUGS (8)
  1. DEPAKOTE ER [Suspect]
     Indication: BIPOLAR DISORDER
     Dosage: 1500 MG DAILY PO
     Route: 048
  2. CAMPRAL [Concomitant]
  3. BUSPAR [Concomitant]
  4. ATENOLOL [Concomitant]
  5. CELEXA [Concomitant]
  6. NAPROSYN [Concomitant]
  7. RISPERDAL [Concomitant]
  8. RESTORIL [Concomitant]

REACTIONS (3)
  - CONFUSIONAL STATE [None]
  - DYSARTHRIA [None]
  - DYSKINESIA [None]
